FAERS Safety Report 18231968 (Version 4)
Quarter: 2021Q1

REPORT INFORMATION
  Report Type: Other
  Country: CA (occurrence: CA)
  Receive Date: 20200904
  Receipt Date: 20210223
  Transmission Date: 20210419
  Serious: Yes (Hospitalization, Other)
  Sender: FDA-Public Use
  Company Number: CA-PFIZER INC-2020340968

PATIENT
  Age: 50 Year
  Sex: Female

DRUGS (43)
  1. MAGNESIUM [Suspect]
     Active Substance: MAGNESIUM
     Indication: COMPLEX REGIONAL PAIN SYNDROME
  2. MONTELUKAST [Suspect]
     Active Substance: MONTELUKAST SODIUM
     Indication: COMPLEX REGIONAL PAIN SYNDROME
     Route: 065
  3. PREDNISONE. [Suspect]
     Active Substance: PREDNISONE
     Dosage: 13 MG
     Route: 065
  4. ANAKINRA [Suspect]
     Active Substance: ANAKINRA
     Indication: COMPLEX REGIONAL PAIN SYNDROME
     Dosage: UNK
     Route: 065
  5. CLONIDINE. [Suspect]
     Active Substance: CLONIDINE
     Indication: COMPLEX REGIONAL PAIN SYNDROME
     Route: 065
  6. HYDROXYCHLOROQUINE SULFATE. [Suspect]
     Active Substance: HYDROXYCHLOROQUINE SULFATE
     Indication: COMPLEX REGIONAL PAIN SYNDROME
     Dosage: UNK
     Route: 065
     Dates: start: 201808
  7. KETAMINE [Suspect]
     Active Substance: KETAMINE
     Dosage: UNK
     Route: 061
  8. MEMANTINE. [Suspect]
     Active Substance: MEMANTINE
     Indication: COMPLEX REGIONAL PAIN SYNDROME
     Route: 065
  9. EZETIMIBE. [Concomitant]
     Active Substance: EZETIMIBE
     Indication: HYPERLIPIDAEMIA
     Route: 065
  10. LIDOCAINE HCL [Suspect]
     Active Substance: LIDOCAINE HYDROCHLORIDE
     Dosage: UNK
     Route: 042
  11. SPIRONOLACTONE. [Suspect]
     Active Substance: SPIRONOLACTONE
     Route: 065
  12. MYCOPHENOLATE MOFETIL. [Suspect]
     Active Substance: MYCOPHENOLATE MOFETIL
     Indication: COMPLEX REGIONAL PAIN SYNDROME
     Route: 065
  13. PALMITOYLETHANOLAMIDE [Suspect]
     Active Substance: PALMIDROL
     Indication: COMPLEX REGIONAL PAIN SYNDROME
     Route: 065
  14. PREDNISONE. [Suspect]
     Active Substance: PREDNISONE
     Indication: COMPLEX REGIONAL PAIN SYNDROME
     Dosage: UNK, 1X/DAY (FREQUENCY: 1 EVERY 24 HOURS )
     Route: 065
  15. PREDNISONE. [Suspect]
     Active Substance: PREDNISONE
     Dosage: UNK, 1X/DAY (1 EVERY 24 HOURS )
     Route: 065
  16. PREDNISONE. [Suspect]
     Active Substance: PREDNISONE
     Dosage: 85 MG, 1X/DAY (1 EVERY 24 HOURS )
     Route: 065
  17. VITAMIN B2 [Suspect]
     Active Substance: RIBOFLAVIN
     Indication: COMPLEX REGIONAL PAIN SYNDROME
  18. LIDOCAINE HCL [Suspect]
     Active Substance: LIDOCAINE HYDROCHLORIDE
     Indication: COMPLEX REGIONAL PAIN SYNDROME
     Dosage: UNK
     Route: 061
  19. PREGABALIN. [Suspect]
     Active Substance: PREGABALIN
     Indication: COMPLEX REGIONAL PAIN SYNDROME
     Route: 065
  20. AMITRIPTYLINE [Suspect]
     Active Substance: AMITRIPTYLINE
     Indication: COMPLEX REGIONAL PAIN SYNDROME
     Route: 065
  21. MAGNESIUM [Suspect]
     Active Substance: MAGNESIUM
     Indication: MIGRAINE PROPHYLAXIS
     Route: 065
  22. MEXILETINE [Suspect]
     Active Substance: MEXILETINE
     Indication: COMPLEX REGIONAL PAIN SYNDROME
     Route: 065
  23. N?ACETYLCYSTEINE [Suspect]
     Active Substance: ACETYLCYSTEINE
     Indication: COMPLEX REGIONAL PAIN SYNDROME
     Route: 065
  24. PENTOXIFYLLINE. [Suspect]
     Active Substance: PENTOXIFYLLINE
     Indication: COMPLEX REGIONAL PAIN SYNDROME
     Route: 065
  25. VITAMIN B2 [Suspect]
     Active Substance: RIBOFLAVIN
     Indication: MIGRAINE PROPHYLAXIS
     Route: 065
  26. AMLODIPINE BESILATE [Suspect]
     Active Substance: AMLODIPINE BESYLATE
     Indication: COMPLEX REGIONAL PAIN SYNDROME
     Route: 065
  27. BUMETANIDE. [Suspect]
     Active Substance: BUMETANIDE
     Indication: COMPLEX REGIONAL PAIN SYNDROME
     Route: 065
  28. CAPSAICIN. [Suspect]
     Active Substance: CAPSAICIN
     Indication: COMPLEX REGIONAL PAIN SYNDROME
     Dosage: UNK
     Route: 061
  29. DILTIAZEM. [Suspect]
     Active Substance: DILTIAZEM
     Indication: COMPLEX REGIONAL PAIN SYNDROME
     Route: 065
  30. METPROLOL [Suspect]
     Active Substance: METOPROLOL
     Indication: COMPLEX REGIONAL PAIN SYNDROME
     Route: 065
  31. PREDNISONE. [Suspect]
     Active Substance: PREDNISONE
     Dosage: 95 MG, DAILY (FREQUENCY: 1 EVERY 24 HOURS)
     Route: 065
  32. TRAZODONE [Concomitant]
     Active Substance: TRAZODONE HYDROCHLORIDE
     Indication: INSOMNIA
     Route: 065
  33. APREMILAST [Suspect]
     Active Substance: APREMILAST
     Indication: COMPLEX REGIONAL PAIN SYNDROME
     Route: 065
  34. CIMETIDINE [Suspect]
     Active Substance: CIMETIDINE
     Indication: COMPLEX REGIONAL PAIN SYNDROME
     Route: 065
  35. ERELZI [Suspect]
     Active Substance: ETANERCEPT-SZZS
     Indication: COMPLEX REGIONAL PAIN SYNDROME
     Route: 065
  36. KETAMINE [Suspect]
     Active Substance: KETAMINE
     Dosage: UNK
     Route: 042
  37. LITHIUM CARBONATE. [Suspect]
     Active Substance: LITHIUM CARBONATE
     Indication: COMPLEX REGIONAL PAIN SYNDROME
     Route: 065
  38. CALCITONIN [Suspect]
     Active Substance: CALCITONIN
     Indication: COMPLEX REGIONAL PAIN SYNDROME
     Route: 065
  39. IBUDILAST [Suspect]
     Active Substance: IBUDILAST
     Indication: COMPLEX REGIONAL PAIN SYNDROME
     Route: 065
  40. KETAMINE [Suspect]
     Active Substance: KETAMINE
     Indication: COMPLEX REGIONAL PAIN SYNDROME
     Dosage: UNK
     Route: 048
  41. NALTREXONE HYDROCHLORIDE. [Suspect]
     Active Substance: NALTREXONE HYDROCHLORIDE
     Indication: COMPLEX REGIONAL PAIN SYNDROME
     Dosage: 4.5 MG, 1X/DAY (FREQUENCY: 1 EVERY 24 HOURS)
     Route: 065
  42. PREDNISONE. [Suspect]
     Active Substance: PREDNISONE
     Dosage: 5 MG
     Route: 065
  43. VITAMIN C [Suspect]
     Active Substance: ASCORBIC ACID
     Indication: COMPLEX REGIONAL PAIN SYNDROME
     Route: 065

REACTIONS (5)
  - Drug ineffective [Recovered/Resolved]
  - Impaired quality of life [Recovered/Resolved]
  - Impaired work ability [Recovered/Resolved]
  - Fatigue [Recovered/Resolved]
  - Poor quality sleep [Recovered/Resolved]
